FAERS Safety Report 5577537-5 (Version None)
Quarter: 2007Q4

REPORT INFORMATION
  Report Type: 
  Country: None (occurrence: None)
  Receive Date: 20071130
  Receipt Date: 20070922
  Transmission Date: 20080405
  Serious: No
  Sender: FDA-Public Use
  Company Number: US200709005207

PATIENT
  Age: 53 Year
  Sex: Female

DRUGS (6)
  1. BYETTA [Suspect]
     Indication: TYPE 2 DIABETES MELLITUS
     Dosage: SUBCUTANEOUS; 5 UG, 2/D, SUBCUTANEOUS; 10 UG, DAILY (1/D), SUBCUTANEOUS; 10 UG, 2/D, SUBCUTANEOUS
     Route: 058
     Dates: start: 20070101, end: 20070201
  2. BYETTA [Suspect]
     Indication: TYPE 2 DIABETES MELLITUS
     Dosage: SUBCUTANEOUS; 5 UG, 2/D, SUBCUTANEOUS; 10 UG, DAILY (1/D), SUBCUTANEOUS; 10 UG, 2/D, SUBCUTANEOUS
     Route: 058
     Dates: start: 20070201
  3. BYETTA [Suspect]
     Indication: TYPE 2 DIABETES MELLITUS
     Dosage: SUBCUTANEOUS; 5 UG, 2/D, SUBCUTANEOUS; 10 UG, DAILY (1/D), SUBCUTANEOUS; 10 UG, 2/D, SUBCUTANEOUS
     Route: 058
     Dates: start: 20070201
  4. . [Concomitant]
  5. . [Concomitant]
  6. . [Concomitant]

REACTIONS (3)
  - NAIL DISORDER [None]
  - ONYCHALGIA [None]
  - ONYCHOMADESIS [None]
